FAERS Safety Report 15028452 (Version 1)
Quarter: 2018Q2

REPORT INFORMATION
  Report Type: Spontaneous
  Country: TR (occurrence: TR)
  Receive Date: 20180619
  Receipt Date: 20180619
  Transmission Date: 20180711
  Serious: Yes (Hospitalization, Other)
  Sender: FDA-Public Use
  Company Number: TR-GLAXOSMITHKLINE-TR2018GSK108016

PATIENT
  Age: 82 Year
  Sex: Female

DRUGS (2)
  1. VENTOLIN [Suspect]
     Active Substance: ALBUTEROL SULFATE
     Indication: DYSPNOEA
     Dosage: 2.5 MG, BID
     Dates: start: 20180520, end: 20180529
  2. VENTOLIN [Suspect]
     Active Substance: ALBUTEROL SULFATE
     Dosage: 2.5 MG, QD
     Dates: start: 20180529, end: 20180529

REACTIONS (5)
  - Eye disorder [Recovered/Resolved]
  - Loss of consciousness [Recovered/Resolved]
  - Swelling face [Unknown]
  - Gait inability [Not Recovered/Not Resolved]
  - Blood pressure decreased [Unknown]

NARRATIVE: CASE EVENT DATE: 20180520
